FAERS Safety Report 19268623 (Version 1)
Quarter: 2021Q2

REPORT INFORMATION
  Report Type: Spontaneous
  Country: PR (occurrence: PR)
  Receive Date: 20210518
  Receipt Date: 20210518
  Transmission Date: 20210717
  Serious: No
  Sender: FDA-Public Use
  Company Number: PR-VIFOR (INTERNATIONAL) INC.-VIT-2019-02891

PATIENT
  Sex: Male
  Weight: 77 kg

DRUGS (2)
  1. VENOFER [Suspect]
     Active Substance: IRON SUCROSE
     Indication: PRODUCT USED FOR UNKNOWN INDICATION
     Route: 042
     Dates: start: 20160428
  2. MIRCERA [Suspect]
     Active Substance: METHOXY POLYETHYLENE GLYCOL-EPOETIN BETA
     Indication: PRODUCT USED FOR UNKNOWN INDICATION
     Dates: start: 20160428

REACTIONS (3)
  - Abdominal pain [Unknown]
  - Diarrhoea [Unknown]
  - Vomiting [Unknown]
